FAERS Safety Report 10450092 (Version 1)
Quarter: 2014Q3

REPORT INFORMATION
  Report Type: Spontaneous
  Country: JP (occurrence: JP)
  Receive Date: 20140912
  Receipt Date: 20140912
  Transmission Date: 20150326
  Serious: Yes (Other)
  Sender: FDA-Public Use
  Company Number: PHHY2014JP116303

PATIENT
  Sex: Female

DRUGS (1)
  1. TASIGNA [Suspect]
     Active Substance: NILOTINIB
     Indication: CHRONIC MYELOID LEUKAEMIA
     Dosage: 450 MG, DAILY
     Route: 048

REACTIONS (4)
  - Electrocardiogram QT prolonged [Unknown]
  - Rash [Unknown]
  - Thyroid cancer [Unknown]
  - Second primary malignancy [Unknown]
